FAERS Safety Report 9181956 (Version 1)
Quarter: 2013Q1

REPORT INFORMATION
  Report Type: Spontaneous
  Country: US (occurrence: US)
  Receive Date: 20130322
  Receipt Date: 20130322
  Transmission Date: 20140127
  Serious: Yes (Other)
  Sender: FDA-Public Use
  Company Number: US-PFIZER INC-2013092117

PATIENT
  Age: 83 Year
  Sex: Female
  Weight: 58.05 kg

DRUGS (2)
  1. FLECTOR [Suspect]
     Indication: SPINAL COLUMN STENOSIS
     Dosage: UNK, AS NEEDED
  2. SYNTHROID [Concomitant]
     Indication: THYROID DISORDER
     Dosage: UNK

REACTIONS (3)
  - Atrial fibrillation [Unknown]
  - Body height decreased [Unknown]
  - Weight decreased [Unknown]
